FAERS Safety Report 16759826 (Version 2)
Quarter: 2019Q3

REPORT INFORMATION
  Report Type: Report from Study
  Country: KR (occurrence: KR)
  Receive Date: 20190830
  Receipt Date: 20190904
  Transmission Date: 20191005
  Serious: Yes (Hospitalization)
  Sender: FDA-Public Use
  Company Number: KR-JNJFOC-20180137708

PATIENT

DRUGS (16)
  1. BEDAQUILINE [Suspect]
     Active Substance: BEDAQUILINE
     Route: 048
     Dates: start: 20171007, end: 20180321
  2. LINEZOLID. [Suspect]
     Active Substance: LINEZOLID
     Indication: TUBERCULOSIS
     Route: 048
     Dates: start: 20170923, end: 20190212
  3. FEROBA [Concomitant]
     Active Substance: FERROUS SULFATE\PROTEASE
     Indication: MINERAL SUPPLEMENTATION
     Route: 048
     Dates: start: 20170719
  4. ESOMEPRAZOLE. [Concomitant]
     Active Substance: ESOMEPRAZOLE MAGNESIUM
     Route: 048
     Dates: start: 20170517
  5. MOTILIUM [Concomitant]
     Active Substance: DOMPERIDONE
     Route: 048
     Dates: start: 20170719
  6. FAMOTIDIN [Concomitant]
     Active Substance: FAMOTIDINE
     Indication: NAUSEA
     Route: 048
     Dates: start: 20171128
  7. CLOFAZIMINE [Suspect]
     Active Substance: CLOFAZIMINE
     Indication: TUBERCULOSIS
     Route: 048
     Dates: start: 20170923, end: 20190212
  8. PARA-AMINOSALICYLIC ACID [Suspect]
     Active Substance: AMINOSALICYLIC ACID
     Indication: TUBERCULOSIS
     Route: 048
     Dates: start: 20171007, end: 20171226
  9. PYRIDOXINE [Concomitant]
     Active Substance: PYRIDOXINE
     Indication: VITAMIN SUPPLEMENTATION
     Route: 048
     Dates: start: 20170808, end: 20190212
  10. EPERISONE [Concomitant]
     Active Substance: EPERISONE
     Route: 048
     Dates: start: 20170922
  11. LIMAPROST [Concomitant]
     Active Substance: LIMAPROST
     Route: 048
     Dates: start: 20170922, end: 20171006
  12. GABAPENTIN. [Concomitant]
     Active Substance: GABAPENTIN
     Route: 048
     Dates: start: 20171107
  13. BEDAQUILINE [Suspect]
     Active Substance: BEDAQUILINE
     Indication: TUBERCULOSIS
     Route: 048
     Dates: start: 20170923, end: 20171006
  14. AMOXICILLIN. [Suspect]
     Active Substance: AMOXICILLIN
     Indication: TUBERCULOSIS
     Route: 048
     Dates: start: 20170923, end: 20171006
  15. DELAMANID [Suspect]
     Active Substance: DELAMANID
     Indication: TUBERCULOSIS
     Route: 048
     Dates: start: 20180320, end: 20180906
  16. OXYCODONE [Concomitant]
     Active Substance: OXYCODONE
     Route: 048
     Dates: start: 20170628

REACTIONS (3)
  - Pruritus [Not Recovered/Not Resolved]
  - Gastric cancer [Not Recovered/Not Resolved]
  - Nausea [Not Recovered/Not Resolved]

NARRATIVE: CASE EVENT DATE: 20171128
